FAERS Safety Report 12960122 (Version 1)
Quarter: 2016Q4

REPORT INFORMATION
  Report Type: Spontaneous
  Country: US (occurrence: US)
  Receive Date: 20161119
  Receipt Date: 20161119
  Transmission Date: 20170207
  Serious: Yes (Disabling, Other)
  Sender: FDA-Public Use
  Company Number: None

PATIENT
  Age: 56 Year
  Sex: Male
  Weight: 114.75 kg

DRUGS (13)
  1. INSULIN [Concomitant]
     Active Substance: INSULIN NOS
  2. METAFORMIN [Concomitant]
  3. GABAPENTIN. [Concomitant]
     Active Substance: GABAPENTIN
  4. LISINOPRIL. [Concomitant]
     Active Substance: LISINOPRIL
  5. ONDANSTETRON [Concomitant]
  6. MULTIVITAMIN [Concomitant]
     Active Substance: VITAMINS
  7. TESTOSTERONE. [Concomitant]
     Active Substance: TESTOSTERONE
  8. ASTHMA [Concomitant]
  9. BOTOX [Suspect]
     Active Substance: ONABOTULINUMTOXINA
     Indication: PAIN
     Dosage: QUANTITY:000000 INJECTION(S);OTHER FREQUENCY:3 MONTHS;OTHER ROUTE:3 MONTHS?
     Dates: start: 20151014, end: 20161101
  10. OXYCODONE [Concomitant]
     Active Substance: OXYCODONE
  11. CELEBREX [Concomitant]
     Active Substance: CELECOXIB
  12. TIZANIDINE. [Concomitant]
     Active Substance: TIZANIDINE
  13. TRAZODONE [Concomitant]
     Active Substance: TRAZODONE HYDROCHLORIDE

REACTIONS (4)
  - Abdominal pain [None]
  - Liver disorder [None]
  - Pain [None]
  - Skin disorder [None]

NARRATIVE: CASE EVENT DATE: 20151102
